FAERS Safety Report 18356827 (Version 2)
Quarter: 2022Q1

REPORT INFORMATION
  Report Type: Report from Study
  Country: CA (occurrence: CA)
  Receive Date: 20201007
  Receipt Date: 20220124
  Transmission Date: 20220423
  Serious: Yes (Other)
  Sender: FDA-Public Use
  Company Number: CA-JNJFOC-20200947546

PATIENT
  Age: 44 Year
  Sex: Male
  Weight: 110.3 kg

DRUGS (2)
  1. REMICADE [Suspect]
     Active Substance: INFLIXIMAB
     Indication: Ankylosing spondylitis
     Route: 042
  2. METHOTREXATE [Concomitant]
     Active Substance: METHOTREXATE
     Indication: Ankylosing spondylitis
     Route: 048

REACTIONS (5)
  - Muscle rupture [Unknown]
  - Erythema [Unknown]
  - Fungal infection [Unknown]
  - Inflammation [Recovering/Resolving]
  - Skin plaque [Unknown]

NARRATIVE: CASE EVENT DATE: 20200901
